FAERS Safety Report 8327542-0 (Version None)
Quarter: 2012Q2

REPORT INFORMATION
  Report Type: 
  Country: None (occurrence: None)
  Receive Date: 20120502
  Receipt Date: 20111010
  Transmission Date: 20120825
  Serious: Yes (Other)
  Sender: FDA-Public Use
  Company Number: US-BAYER-200943768NA

PATIENT
  Sex: Female
  Weight: 56.236 kg

DRUGS (25)
  1. PROGRAF [Concomitant]
     Dosage: DAILY DOSE 1.5 MG
     Dates: start: 20020101, end: 20020101
  2. PROCARDIA XL [Concomitant]
  3. COUMADIN [Concomitant]
     Dosage: DAILY DOSE 2.5 MG
  4. AMIODARONE HCL [Concomitant]
     Indication: ARRHYTHMIA
     Dosage: DAILY DOSE 200 MG
  5. OMNISCAN [Suspect]
     Indication: IMAGING PROCEDURE
     Dosage: UNK
     Dates: start: 19971003, end: 19971003
  6. OMNISCAN [Suspect]
     Indication: NUCLEAR MAGNETIC RESONANCE IMAGING BRAIN
     Dosage: UNK
     Dates: start: 19990201, end: 19990201
  7. EPOGEN [Concomitant]
  8. OMNISCAN [Suspect]
     Dates: start: 20021204, end: 20021204
  9. OMNISCAN [Suspect]
     Dates: start: 20031101, end: 20031101
  10. PREDNISONE [Concomitant]
     Dosage: DAILY DOSE 5 MG
  11. NITROSTAT [Concomitant]
     Indication: CHEST PAIN
     Dosage: 0.4 MG, PRN
     Route: 060
  12. REQUIP [Concomitant]
     Indication: MUSCULOSKELETAL STIFFNESS
     Dosage: 2 MG, HS
     Route: 048
  13. MAGNEVIST [Suspect]
     Indication: IMAGING PROCEDURE
  14. OMNISCAN [Suspect]
     Dates: start: 20040916, end: 20040916
  15. MYCOPHENOLATE MOFETIL (CELLCEPT) [Concomitant]
     Dosage: 250 MG, BID
  16. OMNISCAN [Suspect]
     Dosage: UNK
     Dates: start: 20020825, end: 20020825
  17. OMNISCAN [Suspect]
     Dates: start: 20021211, end: 20021211
  18. MYFORTIC [Concomitant]
     Dosage: 360 MG, BID
  19. LASIX [Concomitant]
     Dosage: 40 MG, BID
  20. OMNISCAN [Suspect]
  21. DANAZOL [Concomitant]
     Dosage: DAILY DOSE 800 MG
  22. OMNISCAN [Suspect]
     Indication: NUCLEAR MAGNETIC RESONANCE IMAGING THORACIC
     Dosage: UNK
     Dates: start: 20020701, end: 20020701
  23. PROGRAF [Concomitant]
     Dosage: DAILY DOSE 1.5 MG
     Dates: start: 19930101, end: 19930101
  24. DIOVAN [Concomitant]
     Dosage: DAILY DOSE 80 MG
  25. ISOSORBIDE DINITRATE [Concomitant]
     Indication: CHEST PAIN
     Dosage: DAILY DOSE 30 MG

REACTIONS (13)
  - ARTHRALGIA [None]
  - NEPHROGENIC SYSTEMIC FIBROSIS [None]
  - FIBROSIS [None]
  - JOINT CONTRACTURE [None]
  - PAIN [None]
  - ABASIA [None]
  - MUSCULAR WEAKNESS [None]
  - OEDEMA [None]
  - SKIN TIGHTNESS [None]
  - SKIN HYPERTROPHY [None]
  - IMPAIRED HEALING [None]
  - JOINT STIFFNESS [None]
  - SKIN INDURATION [None]
